FAERS Safety Report 11394622 (Version 1)
Quarter: 2015Q3

REPORT INFORMATION
  Report Type: Spontaneous
  Country: US (occurrence: None)
  Receive Date: 20150817
  Receipt Date: 20150817
  Transmission Date: 20151125
  Serious: Yes (Hospitalization)
  Sender: FDA-Public Use
  Company Number: None

PATIENT
  Age: 72 Year
  Sex: Male
  Weight: 107.96 kg

DRUGS (1)
  1. RITUXIMAB (MOAB C2B8 ANTI CD20, CHIMERIC) [Suspect]
     Active Substance: RITUXIMAB
     Dates: end: 20150730

REACTIONS (8)
  - Blood creatinine increased [None]
  - Infusion related reaction [None]
  - Hyponatraemia [None]
  - Urinary tract infection [None]
  - Malaise [None]
  - Arthralgia [None]
  - Mobility decreased [None]
  - Rash maculo-papular [None]

NARRATIVE: CASE EVENT DATE: 20150811
